FAERS Safety Report 19523209 (Version 1)
Quarter: 2021Q3

REPORT INFORMATION
  Report Type: Spontaneous
  Country: US (occurrence: US)
  Receive Date: 20210713
  Receipt Date: 20210713
  Transmission Date: 20211014
  Serious: Yes (Hospitalization, Other)
  Sender: FDA-Public Use
  Company Number: US-AUROBINDO-AUR-APL-2018-006350

PATIENT
  Age: 11 Year
  Sex: Male

DRUGS (3)
  1. EPINEPHRINE. [Concomitant]
     Active Substance: EPINEPHRINE
     Indication: ANAPHYLACTIC REACTION
     Dosage: UNK
     Route: 065
  2. IBUPROFEN. [Suspect]
     Active Substance: IBUPROFEN
     Indication: PAIN
     Dosage: 400 MG, UNK
     Route: 048
  3. DOPAMINE [Suspect]
     Active Substance: DOPAMINE HYDROCHLORIDE
     Indication: PRODUCT USED FOR UNKNOWN INDICATION
     Dosage: UNK
     Route: 065

REACTIONS (17)
  - Atrial fibrillation [Recovering/Resolving]
  - Loss of consciousness [Recovering/Resolving]
  - Confusional state [Recovering/Resolving]
  - Systemic lupus erythematosus [Recovering/Resolving]
  - Rash erythematous [Recovering/Resolving]
  - Pyrexia [Recovering/Resolving]
  - Conjunctivitis [Recovering/Resolving]
  - Hyperhidrosis [Recovering/Resolving]
  - Hypoperfusion [Recovering/Resolving]
  - Pericardial effusion [Recovered/Resolved]
  - Hypotension [Recovering/Resolving]
  - Flushing [Recovering/Resolving]
  - Aggression [Recovering/Resolving]
  - Tachycardia [Recovering/Resolving]
  - Hypersensitivity [Recovering/Resolving]
  - Nausea [Recovering/Resolving]
  - Metabolic acidosis [Recovering/Resolving]
